FAERS Safety Report 5419861-2 (Version None)
Quarter: 2007Q3

REPORT INFORMATION
  Report Type: 
  Country: None (occurrence: None)
  Receive Date: 20070718
  Receipt Date: 20060816
  Transmission Date: 20080115
  Serious: Yes (Death)
  Sender: FDA-Public Use
  Company Number: 2006102049

PATIENT
  Age: 48 Year
  Sex: Male
  Weight: 83.9154 kg

DRUGS (1)
  1. CELEBREX [Suspect]
     Indication: NECK PAIN
     Dosage: 200 MG (200 MG, 1 IN 1 D)
     Dates: start: 20040201

REACTIONS (1)
  - MYOCARDIAL INFARCTION [None]
